FAERS Safety Report 4748607-6 (Version None)
Quarter: 2005Q3

REPORT INFORMATION
  Report Type: 
  Country: None (occurrence: None)
  Receive Date: 20050817
  Receipt Date: 20050810
  Transmission Date: 20060218
  Serious: Yes (Other)
  Sender: FDA-Public Use
  Company Number: USA-2005-0020989

PATIENT
  Sex: Female

DRUGS (6)
  1. SENOKOT [Suspect]
     Indication: CONSTIPATION
     Dosage: 2 TABLET, ORAL
     Route: 048
     Dates: start: 20050605, end: 20050720
  2. NEXIUM [Concomitant]
  3. LEVBID (HYOSCYAMINE SULFATE) [Concomitant]
  4. PEPCID [Concomitant]
  5. CLARINEX [Concomitant]
  6. LASIX [Concomitant]

REACTIONS (1)
  - BLOOD ALKALINE PHOSPHATASE INCREASED [None]
